FAERS Safety Report 13410268 (Version 1)
Quarter: 2017Q2

REPORT INFORMATION
  Report Type: Spontaneous
  Country: US (occurrence: US)
  Receive Date: 20170406
  Receipt Date: 20170406
  Transmission Date: 20170830
  Serious: No
  Sender: FDA-Public Use
  Company Number: US-BIOGEN-2017BI00380130

PATIENT
  Age: 61 Year
  Sex: Female

DRUGS (1)
  1. TYSABRI [Suspect]
     Active Substance: NATALIZUMAB
     Indication: MULTIPLE SCLEROSIS
     Route: 065
     Dates: start: 20071010

REACTIONS (4)
  - Cystitis [Recovered/Resolved]
  - Asthma [Recovered/Resolved]
  - Respiratory syncytial virus infection [Recovered/Resolved]
  - Hemiparesis [Recovered/Resolved]

NARRATIVE: CASE EVENT DATE: 20170301
